FAERS Safety Report 14319047 (Version 3)
Quarter: 2018Q2

REPORT INFORMATION
  Report Type: Report from Study
  Country: US (occurrence: US)
  Receive Date: 20171222
  Receipt Date: 20180517
  Transmission Date: 20180711
  Serious: Yes (Hospitalization)
  Sender: FDA-Public Use
  Company Number: US-ACTELION-A-US2017-164668

PATIENT
  Age: 22 Month
  Sex: Female

DRUGS (10)
  1. TRACLEER [Suspect]
     Active Substance: BOSENTAN
     Indication: PULMONARY ARTERIAL HYPERTENSION
     Dosage: 15.625 MG, BID
     Route: 048
     Dates: start: 20170113
  2. RANITIDINE. [Concomitant]
     Active Substance: RANITIDINE
  3. DIURIL [Concomitant]
     Active Substance: CHLOROTHIAZIDE
  4. ONDANSETRON [Concomitant]
     Active Substance: ONDANSETRON
  5. BUMETANIDE. [Concomitant]
     Active Substance: BUMETANIDE
  6. CLINDAMYCIN. [Concomitant]
     Active Substance: CLINDAMYCIN
  7. FLOVENT HFA [Concomitant]
     Active Substance: FLUTICASONE PROPIONATE
  8. CEFDINIR. [Concomitant]
     Active Substance: CEFDINIR
  9. POTASSIUM CHLORIDE. [Concomitant]
     Active Substance: POTASSIUM CHLORIDE
  10. CLAVU M [Concomitant]

REACTIONS (6)
  - Nausea [Not Recovered/Not Resolved]
  - Dehydration [Not Recovered/Not Resolved]
  - Dyspnoea [Recovered/Resolved]
  - Pharyngitis streptococcal [Not Recovered/Not Resolved]
  - Tonsillectomy [Unknown]
  - Diarrhoea [Not Recovered/Not Resolved]

NARRATIVE: CASE EVENT DATE: 20180127
